FAERS Safety Report 7741177-X (Version None)
Quarter: 2011Q3

REPORT INFORMATION
  Report Type: 
  Country: None (occurrence: None)
  Receive Date: 20110909
  Receipt Date: 20110829
  Transmission Date: 20111222
  Serious: Yes (Other)
  Sender: FDA-Public Use
  Company Number: JP-ELI_LILLY_AND_COMPANY-JP201108009092

PATIENT
  Age: 35 Year
  Sex: Female

DRUGS (3)
  1. CHLORPROMAZINE [Concomitant]
     Indication: SCHIZOPHRENIA
     Dosage: UNK
     Route: 048
  2. MIRTAZAPINE [Concomitant]
     Indication: INSOMNIA
     Dosage: UNK
     Route: 048
     Dates: start: 20110801
  3. ZYPREXA [Suspect]
     Indication: SCHIZOPHRENIA
     Dosage: 10 MG, QD
     Route: 048
     Dates: start: 20110201

REACTIONS (2)
  - WHITE BLOOD CELL COUNT DECREASED [None]
  - WEIGHT DECREASED [None]
